FAERS Safety Report 19479317 (Version 4)
Quarter: 2022Q2

REPORT INFORMATION
  Report Type: Spontaneous
  Country: AR (occurrence: AR)
  Receive Date: 20210701
  Receipt Date: 20220404
  Transmission Date: 20220721
  Serious: Yes (Other)
  Sender: FDA-Public Use
  Company Number: AR-PFIZER INC-2021725947

PATIENT
  Age: 79 Year
  Sex: Female

DRUGS (6)
  1. ENBREL [Suspect]
     Active Substance: ETANERCEPT
     Indication: Rheumatoid arthritis
     Dosage: 50 WEEKLY (2 DOSES PER WEEK)
     Route: 065
     Dates: start: 19970601
  2. ENBREL [Suspect]
     Active Substance: ETANERCEPT
     Dosage: 50 MILLIGRAM, QWK   (2 DOSES PER WEEK)
     Route: 065
     Dates: start: 19970601
  3. PANTUS [Concomitant]
     Dosage: UNK
  4. LEVOTHYROXINE [Concomitant]
     Active Substance: LEVOTHYROXINE
     Dosage: UNK
  5. LOTRIAL D [Concomitant]
     Dosage: UNK
  6. TAFIROL 1 G [Concomitant]
     Dosage: UNK

REACTIONS (6)
  - Renal surgery [Recovered/Resolved]
  - Gallbladder disorder [Recovered/Resolved]
  - Biliary colic [Unknown]
  - Procedural pain [Unknown]
  - Hypertension [Unknown]
  - Headache [Recovered/Resolved]
